FAERS Safety Report 22184740 (Version 1)
Quarter: 2023Q2

REPORT INFORMATION
  Report Type: Spontaneous
  Country: CA (occurrence: None)
  Receive Date: 20230407
  Receipt Date: 20230407
  Transmission Date: 20230721
  Serious: Yes (Other)
  Sender: FDA-Public Use
  Company Number: CA-ROCHE-3324771

PATIENT
  Age: 52 Year
  Sex: Female

DRUGS (3)
  1. ENTRECTINIB [Suspect]
     Active Substance: ENTRECTINIB
     Indication: Product used for unknown indication
     Route: 065
  2. XALKORI [Concomitant]
     Active Substance: CRIZOTINIB
     Indication: Product used for unknown indication
     Route: 065
     Dates: end: 20210326
  3. LORBRENA [Concomitant]
     Active Substance: LORLATINIB
     Indication: Non-small cell lung cancer stage IV
     Route: 048

REACTIONS (1)
  - Metastases to central nervous system [Unknown]
